FAERS Safety Report 8548297-0 (Version None)
Quarter: 2012Q3

REPORT INFORMATION
  Report Type: 
  Country: None (occurrence: None)
  Receive Date: 20120730
  Receipt Date: 20120717
  Transmission Date: 20120928
  Serious: Yes (Other)
  Sender: FDA-Public Use
  Company Number: US-JNJFOC-20120710239

PATIENT
  Sex: Male

DRUGS (7)
  1. DURAGESIC-100 [Suspect]
     Indication: PAIN MANAGEMENT
     Route: 062
  2. PAXIL [Concomitant]
     Indication: PRODUCT USED FOR UNKNOWN INDICATION
     Route: 065
  3. CATAPRES [Concomitant]
     Indication: PRODUCT USED FOR UNKNOWN INDICATION
     Route: 065
  4. DURAGESIC-100 [Suspect]
     Route: 062
  5. MOTRIN [Concomitant]
     Indication: PRODUCT USED FOR UNKNOWN INDICATION
     Dosage: EVERY 3 TO 4 HOURS X 150
     Route: 065
  6. MORPHINE SULFATE [Concomitant]
     Indication: PRODUCT USED FOR UNKNOWN INDICATION
     Route: 065
  7. ROXICODONE [Concomitant]
     Indication: BREAKTHROUGH PAIN
     Dosage: EVERY 3 TO 4 HOURS AS NEEDED X 150
     Route: 065

REACTIONS (10)
  - PERONEAL NERVE PALSY [None]
  - MUSCULOSKELETAL STIFFNESS [None]
  - INAPPROPRIATE SCHEDULE OF DRUG ADMINISTRATION [None]
  - PAIN [None]
  - OPIATES POSITIVE [None]
  - COUGH [None]
  - GAIT DISTURBANCE [None]
  - HYPOKINESIA [None]
  - WRONG TECHNIQUE IN DRUG USAGE PROCESS [None]
  - SNEEZING [None]
